FAERS Safety Report 18628097 (Version 1)
Quarter: 2020Q4

REPORT INFORMATION
  Report Type: Spontaneous
  Country: US (occurrence: US)
  Receive Date: 20201217
  Receipt Date: 20201217
  Transmission Date: 20210114
  Serious: No
  Sender: FDA-Public Use
  Company Number: None

PATIENT
  Age: 74 Year
  Sex: Male
  Weight: 81.45 kg

DRUGS (2)
  1. JAKAFI [Concomitant]
     Active Substance: RUXOLITINIB
     Dates: start: 20140930
  2. JAKAFI [Suspect]
     Active Substance: RUXOLITINIB
     Route: 048

REACTIONS (2)
  - Dyspnoea [None]
  - Blood count abnormal [None]

NARRATIVE: CASE EVENT DATE: 20201214
